FAERS Safety Report 6730917-4 (Version None)
Quarter: 2010Q2

REPORT INFORMATION
  Report Type: 
  Country: None (occurrence: None)
  Receive Date: 20100518
  Receipt Date: 20100510
  Transmission Date: 20101027
  Serious: Yes (Hospitalization)
  Sender: FDA-Public Use
  Company Number: PHHY2010FR30138

PATIENT
  Age: 50 Year
  Sex: Male

DRUGS (10)
  1. NEORAL [Suspect]
     Dosage: 135 MG DAILY
  2. CELLCEPT [Concomitant]
  3. SOLUPRED [Concomitant]
  4. DILTIAZEM [Concomitant]
  5. MOLSIDOMINE [Concomitant]
  6. IMOVANE [Concomitant]
  7. CALCIDIA [Concomitant]
  8. KARDEGIC [Concomitant]
  9. TAHOR [Concomitant]
  10. FOSAMAX [Concomitant]

REACTIONS (4)
  - NEPHROPATHY TOXIC [None]
  - PERITONITIS [None]
  - POLYURIA [None]
  - RENAL FAILURE CHRONIC [None]
